FAERS Safety Report 6615855-X (Version None)
Quarter: 2010Q1

REPORT INFORMATION
  Report Type: 
  Country: None (occurrence: None)
  Receive Date: 20100305
  Receipt Date: 20100301
  Transmission Date: 20100710
  Serious: Yes (Death, Other)
  Sender: FDA-Public Use
  Company Number: US-TEVA-196746USA

PATIENT
  Sex: Female

DRUGS (3)
  1. NALTREXONE HYDROCHLORIDE TABLET 50MG [Suspect]
     Route: 048
     Dates: start: 20080801, end: 20080827
  2. INTERFERON BETA-1A [Suspect]
     Indication: RELAPSING-REMITTING MULTIPLE SCLEROSIS
     Dates: start: 20030609, end: 20080806
  3. INTERFERON BETA-1A [Suspect]
     Dosage: 44MCG 3X PER WEEK
     Route: 058
     Dates: start: 20030609, end: 20080801

REACTIONS (2)
  - MOTOR DYSFUNCTION [None]
  - MYOCARDIAL INFARCTION [None]
